FAERS Safety Report 9435297 (Version 1)
Quarter: 2013Q3

REPORT INFORMATION
  Report Type: Spontaneous
  Country: US (occurrence: US)
  Receive Date: 20130801
  Receipt Date: 20130801
  Transmission Date: 20140515
  Serious: Yes (Hospitalization, Other)
  Sender: FDA-Public Use
  Company Number: US-TARO PHARMACEUTICALS U.S.A., INC-2013SUN01565

PATIENT
  Age: 75 Year
  Sex: Male

DRUGS (9)
  1. WARFARIN SODIUM TABLETS USP 5 MG [Suspect]
     Indication: ATRIAL FIBRILLATION
     Dosage: 5 MG ONCE A DAY
     Route: 048
  2. WARFARIN SODIUM TABLETS USP 5 MG [Suspect]
     Dosage: 5 MG, BID
     Route: 048
  3. METOPROLOL [Concomitant]
  4. LISINOPRIL [Concomitant]
  5. HYDROCHLOROTHIAZIDE [Concomitant]
  6. DOXAZOSIN [Concomitant]
  7. DIGOXIN [Concomitant]
  8. SIMVASTATIN [Concomitant]
  9. CLOPIDOGREL [Concomitant]

REACTIONS (2)
  - Compartment syndrome [Unknown]
  - International normalised ratio increased [Recovering/Resolving]
